FAERS Safety Report 7928645-2 (Version None)
Quarter: 2011Q4

REPORT INFORMATION
  Report Type: 
  Country: None (occurrence: None)
  Receive Date: 20111118
  Receipt Date: 20111114
  Transmission Date: 20120403
  Serious: Yes (Other)
  Sender: FDA-Public Use
  Company Number: US-ABBOTT-11P-163-0873919-00

PATIENT
  Sex: Female
  Weight: 104.42 kg

DRUGS (21)
  1. GABAPENTIN [Concomitant]
     Indication: ANXIETY
  2. IBUPROFEN [Concomitant]
     Indication: PAIN
  3. LORATADINE [Concomitant]
     Indication: ANXIOLYTIC THERAPY
  4. XANAX [Concomitant]
     Indication: ANXIOLYTIC THERAPY
  5. FIBER POWDER [Concomitant]
     Indication: MEDICAL DIET
  6. RANITIDINE [Concomitant]
     Indication: GASTROOESOPHAGEAL REFLUX DISEASE
  7. DILTIAZEM HCL [Concomitant]
     Indication: HYPERTENSION
  8. FOLIC ACID [Concomitant]
     Indication: VITAMIN SUPPLEMENTATION
  9. HUMIRA [Suspect]
     Indication: RHEUMATOID ARTHRITIS
     Dates: start: 20110601, end: 20111001
  10. ALBUTEROL SULFATE [Concomitant]
     Indication: ASTHMA
     Dosage: VIA NEBULIZER
  11. GABAPENTIN [Concomitant]
     Indication: TACHYPHRENIA
  12. LORATADINE [Concomitant]
     Indication: PRURITUS
  13. CLONAZEPAM [Concomitant]
     Indication: ANXIETY
  14. MULTI-VITAMIN [Concomitant]
     Indication: VITAMIN SUPPLEMENTATION
  15. GABAPENTIN [Concomitant]
     Indication: DISTURBANCE IN ATTENTION
  16. ALBUTEROL [Concomitant]
     Indication: ASTHMA
  17. PRAVASTATIN [Concomitant]
     Indication: BLOOD CHOLESTEROL INCREASED
  18. TRIAMTERENE AND HYDROCHLOROTHIAZIDE [Concomitant]
     Indication: HYPERTENSION
  19. CLONAZEPAM [Concomitant]
     Indication: ANXIOLYTIC THERAPY
  20. METHOTREXATE [Concomitant]
     Indication: RHEUMATOID ARTHRITIS
  21. OMEPRAZOLE [Concomitant]
     Indication: GASTROOESOPHAGEAL REFLUX DISEASE

REACTIONS (8)
  - PRODUCTIVE COUGH [None]
  - TOOTH DISORDER [None]
  - ARTHRALGIA [None]
  - PULMONARY OEDEMA [None]
  - CONDITION AGGRAVATED [None]
  - RESPIRATORY TRACT INFECTION [None]
  - NASOPHARYNGITIS [None]
  - DISEASE PROGRESSION [None]
